FAERS Safety Report 14962950 (Version 12)
Quarter: 2019Q1

REPORT INFORMATION
  Report Type: Spontaneous
  Country: GR (occurrence: GR)
  Receive Date: 20180601
  Receipt Date: 20190128
  Transmission Date: 20190417
  Serious: Yes (Death, Life-Threatening, Other)
  Sender: FDA-Public Use
  Company Number: GR-MYLANLABS-2018M1034998

PATIENT
  Age: 25 Year
  Sex: Male

DRUGS (11)
  1. FLUOXETINE [Suspect]
     Active Substance: FLUOXETINE HYDROCHLORIDE
     Indication: DEPRESSION
     Dosage: UNK
     Route: 065
  2. VALPROIC ACID. [Interacting]
     Active Substance: VALPROIC ACID
     Indication: DEPRESSION
     Dosage: UNK
     Route: 048
  3. PERINDOPRIL [Interacting]
     Active Substance: PERINDOPRIL
     Indication: PRODUCT USED FOR UNKNOWN INDICATION
     Dosage: UNK
     Route: 065
  4. CITALOPRAM [Interacting]
     Active Substance: CITALOPRAM HYDROBROMIDE
     Indication: DEPRESSION
     Dosage: UNK
     Route: 065
  5. PROPRANOLOL [Interacting]
     Active Substance: PROPRANOLOL HYDROCHLORIDE
     Indication: PRODUCT USED FOR UNKNOWN INDICATION
     Dosage: UNK
     Route: 065
  6. DESLORATADINE. [Interacting]
     Active Substance: DESLORATADINE
     Indication: PRODUCT USED FOR UNKNOWN INDICATION
     Dosage: UNK
     Route: 065
  7. SEROPRAM (CITALOPRAM HYDROBROMIDE) [Interacting]
     Active Substance: CITALOPRAM HYDROBROMIDE
     Indication: DEPRESSION
     Dosage: UNK
     Route: 065
  8. MOCLOBEMIDE [Interacting]
     Active Substance: MOCLOBEMIDE
     Indication: DEPRESSION
     Dosage: UNK
     Route: 065
  9. QUETIAPINE. [Interacting]
     Active Substance: QUETIAPINE
     Indication: DEPRESSION
     Dosage: UNK
     Route: 048
  10. FLURBIPROFEN. [Interacting]
     Active Substance: FLURBIPROFEN
     Indication: PRODUCT USED FOR UNKNOWN INDICATION
     Dosage: UNK
     Route: 065
  11. ALPRAZOLAM. [Interacting]
     Active Substance: ALPRAZOLAM
     Indication: DEPRESSION
     Dosage: UNK
     Route: 048

REACTIONS (13)
  - Drug interaction [Fatal]
  - Electrocardiogram QT prolonged [Fatal]
  - Contraindicated product administered [Fatal]
  - Arteriosclerosis coronary artery [Fatal]
  - Toxicity to various agents [Fatal]
  - Intentional overdose [Fatal]
  - Sudden death [Fatal]
  - Arrhythmia [Fatal]
  - Ischaemic cerebral infarction [Fatal]
  - Infarction [Unknown]
  - Off label use [Unknown]
  - Hypertrophic cardiomyopathy [Fatal]
  - Product use issue [Unknown]
